FAERS Safety Report 5731619-3 (Version None)
Quarter: 2008Q2

REPORT INFORMATION
  Report Type: 
  Country: None (occurrence: None)
  Receive Date: 20080508
  Receipt Date: 20080428
  Transmission Date: 20081010
  Serious: Yes (Death, Hospitalization, Other)
  Sender: FDA-Public Use
  Company Number: US-AMGEN-QUU276539

PATIENT
  Sex: Female

DRUGS (15)
  1. ENBREL [Suspect]
     Indication: DRUG USE FOR UNKNOWN INDICATION
  2. TELITHROMYCIN [Suspect]
     Route: 048
  3. ACETYLSALICYLIC ACID SRT [Concomitant]
  4. METFORMIN HCL [Concomitant]
  5. PREDNISONE TAB [Concomitant]
  6. METOPROLOL TARTRATE [Concomitant]
  7. METOCLOPRAMIDE [Concomitant]
  8. LEVOTHYROXINE SODIUM [Concomitant]
  9. FERROUS SULFATE TAB [Concomitant]
  10. VITAMIN CAP [Concomitant]
  11. SUCRALFATE [Concomitant]
  12. OMEPRAZOLE [Concomitant]
  13. LORAZEPAM [Concomitant]
  14. ACTOS [Concomitant]
  15. REMICADE [Concomitant]

REACTIONS (30)
  - ANGINA PECTORIS [None]
  - ANTI-SS-A ANTIBODY POSITIVE [None]
  - AUTOIMMUNE HEPATITIS [None]
  - BLOOD CREATINE PHOSPHOKINASE INCREASED [None]
  - BLOOD PRESSURE DECREASED [None]
  - BRONCHOPNEUMONIA [None]
  - COLITIS ISCHAEMIC [None]
  - CONFUSIONAL STATE [None]
  - CORONARY ARTERY DISEASE [None]
  - DECREASED APPETITE [None]
  - DEHYDRATION [None]
  - FATIGUE [None]
  - GASTROINTESTINAL HAEMORRHAGE [None]
  - HEPATIC STEATOSIS [None]
  - HYPONATRAEMIA [None]
  - INJURY [None]
  - LIVER DISORDER [None]
  - NAUSEA [None]
  - PANCREATIC DISORDER [None]
  - PANCYTOPENIA [None]
  - PNEUMONIA [None]
  - PULMONARY OEDEMA [None]
  - RENAL FAILURE [None]
  - RENAL FAILURE ACUTE [None]
  - SEPSIS [None]
  - SPLENIC ARTERY ANEURYSM [None]
  - TACHYCARDIA [None]
  - UNRESPONSIVE TO STIMULI [None]
  - VOMITING [None]
  - WEIGHT DECREASED [None]
